FAERS Safety Report 5971300-9 (Version None)
Quarter: 2008Q4

REPORT INFORMATION
  Report Type: 
  Country: None (occurrence: None)
  Receive Date: 20081128
  Receipt Date: 20081119
  Transmission Date: 20090506
  Serious: Yes (Hospitalization)
  Sender: FDA-Public Use
  Company Number: IL-PFIZER INC-2008098433

PATIENT
  Sex: Female

DRUGS (4)
  1. DOXORUBICIN HYDROCHLORIDE [Suspect]
  2. CYCLOPHOSPHAMIDE [Suspect]
  3. PEGFILGRASTIM [Suspect]
     Indication: CHEMOTHERAPY
     Route: 058
  4. DEXRAZOXANE [Concomitant]

REACTIONS (5)
  - BONE PAIN [None]
  - CHILLS [None]
  - HYPONATRAEMIA [None]
  - INFLUENZA LIKE ILLNESS [None]
  - PYREXIA [None]
